FAERS Safety Report 24117129 (Version 1)
Quarter: 2024Q3

REPORT INFORMATION
  Report Type: Spontaneous
  Country: CN (occurrence: CN)
  Receive Date: 20240722
  Receipt Date: 20240722
  Transmission Date: 20241017
  Serious: Yes (Death, Other)
  Sender: CHEPLAPHARM
  Company Number: CN-CHEPLA-2024009099

PATIENT
  Age: 25 Year
  Sex: Male

DRUGS (1)
  1. GANCICLOVIR [Suspect]
     Active Substance: GANCICLOVIR
     Dosage: DAILY DOSE: 250 MILLIGRAM

REACTIONS (3)
  - Cardio-respiratory arrest [Fatal]
  - Disseminated intravascular coagulation [Unknown]
  - Condition aggravated [Unknown]
